FAERS Safety Report 19642452 (Version 1)
Quarter: 2021Q3

REPORT INFORMATION
  Report Type: Spontaneous
  Country: US (occurrence: US)
  Receive Date: 20210730
  Receipt Date: 20210730
  Transmission Date: 20211014
  Serious: Yes (Hospitalization, Other)
  Sender: FDA-Public Use
  Company Number: US-ASTRAZENECA-2021A643652

PATIENT
  Age: 928 Month
  Sex: Male
  Weight: 59 kg

DRUGS (1)
  1. BRILINTA [Suspect]
     Active Substance: TICAGRELOR
     Indication: STENT PLACEMENT
     Route: 048
     Dates: start: 202107, end: 20210710

REACTIONS (11)
  - Head injury [Unknown]
  - Visual field defect [Unknown]
  - Fall [Unknown]
  - Seizure [Unknown]
  - Weight decreased [Unknown]
  - Nervous system disorder [Unknown]
  - Loss of consciousness [Unknown]
  - Mental impairment [Unknown]
  - Dizziness [Unknown]
  - Pain [Unknown]
  - Haemorrhage intracranial [Unknown]

NARRATIVE: CASE EVENT DATE: 202107
